FAERS Safety Report 5718796-5 (Version None)
Quarter: 2008Q2

REPORT INFORMATION
  Report Type: 
  Country: None (occurrence: None)
  Receive Date: 20080425
  Receipt Date: 20080420
  Transmission Date: 20081010
  Serious: Yes (Other)
  Sender: FDA-Public Use
  Company Number: HU-BOEHRINGER INGELHEIM GMBH, GERMANY-2008-AP-00095AP

PATIENT
  Age: 54 Year
  Sex: Female

DRUGS (3)
  1. MICARDIS [Suspect]
     Indication: HYPERTENSION
     Route: 048
     Dates: start: 20060101, end: 20080401
  2. CONCOR COR [Concomitant]
     Indication: CARDIAC FAILURE CHRONIC
  3. PPI [Concomitant]
     Indication: GASTROINTESTINAL HAEMORRHAGE

REACTIONS (2)
  - DRUG INEFFECTIVE [None]
  - HEPATIC FAILURE [None]
